FAERS Safety Report 5201366-5 (Version None)
Quarter: 2007Q1

REPORT INFORMATION
  Report Type: 
  Country: None (occurrence: None)
  Receive Date: 20070104
  Receipt Date: 20061221
  Transmission Date: 20070707
  Serious: Yes (Hospitalization)
  Sender: FDA-Public Use
  Company Number: T200601486

PATIENT
  Age: 27 Year
  Sex: Female

DRUGS (1)
  1. OPTIMARK IN PLASTIC SYRINGES (GADOVERSET AMIDE) INJECTION [Suspect]
     Indication: NUCLEAR MAGNETIC RESONANCE IMAGING BRAIN
     Dosage: 13  ML, SINGLE, INTRAVENOUS
     Route: 042
     Dates: start: 20061116, end: 20061116

REACTIONS (2)
  - ANAPHYLACTIC REACTION [None]
  - RESPIRATORY DISTRESS [None]
